FAERS Safety Report 12347565 (Version 2)
Quarter: 2016Q2

REPORT INFORMATION
  Report Type: Other
  Country: None (occurrence: US)
  Receive Date: 20160509
  Receipt Date: 20160513
  Transmission Date: 20160815
  Serious: Yes (Hospitalization)
  Sender: FDA-Public Use
  Company Number: US-ANTARES PHARMA, INC.-2016-LIT-ME-0273

PATIENT
  Age: 54 Year
  Sex: Male

DRUGS (5)
  1. METHOTREXATE [Suspect]
     Active Substance: METHOTREXATE
     Indication: PSORIASIS
  2. LISINOPRIL. [Suspect]
     Active Substance: LISINOPRIL
  3. PREDNISONE. [Concomitant]
     Active Substance: PREDNISONE
     Indication: PSORIASIS
  4. INSULIN [Concomitant]
     Active Substance: INSULIN NOS
     Indication: DIABETES MELLITUS
  5. METOPROLOL. [Suspect]
     Active Substance: METOPROLOL

REACTIONS (1)
  - Stevens-Johnson syndrome [None]
